FAERS Safety Report 11299473 (Version 1)
Quarter: 2015Q3

REPORT INFORMATION
  Report Type: Spontaneous
  Country: US (occurrence: US)
  Receive Date: 20150722
  Receipt Date: 20150722
  Transmission Date: 20151125
  Serious: No
  Sender: FDA-Public Use
  Company Number: US-ELI_LILLY_AND_COMPANY-US201110006595

PATIENT
  Sex: Female
  Weight: 87.53 kg

DRUGS (3)
  1. ACTONEL [Concomitant]
     Active Substance: RISEDRONATE SODIUM
  2. HUMATROPE [Suspect]
     Active Substance: SOMATROPIN
     Indication: BLOOD GROWTH HORMONE
     Dosage: 0.3 DAILY
  3. HUMATROPE [Suspect]
     Active Substance: SOMATROPIN

REACTIONS (8)
  - Weight increased [Recovered/Resolved]
  - Fatigue [Recovered/Resolved]
  - Wrist fracture [Recovered/Resolved]
  - Fall [Recovered/Resolved]
  - Asthenia [Recovered/Resolved]
  - Malaise [Recovered/Resolved]
  - Underdose [Recovered/Resolved]
  - Disturbance in attention [Recovered/Resolved]
